FAERS Safety Report 22613812 (Version 10)
Quarter: 2023Q4

REPORT INFORMATION
  Report Type: Report from Study
  Country: US (occurrence: US)
  Receive Date: 20230619
  Receipt Date: 20231220
  Transmission Date: 20240110
  Serious: Yes (Hospitalization)
  Sender: FDA-Public Use
  Company Number: US-ACADIA PHARMACEUTICALS INC.-ACA-2023-TRF-002064

PATIENT
  Age: 12 Year
  Sex: Female

DRUGS (12)
  1. DAYBUE [Interacting]
     Active Substance: TROFINETIDE
     Indication: Rett syndrome
     Dosage: 10 MILLILITER
     Dates: start: 20230523
  2. DAYBUE [Interacting]
     Active Substance: TROFINETIDE
     Dosage: 7 MILLILITER
     Route: 065
  3. DAYBUE [Interacting]
     Active Substance: TROFINETIDE
     Dosage: 3 MILLILITER
     Route: 065
     Dates: start: 20230528
  4. DAYBUE [Interacting]
     Active Substance: TROFINETIDE
     Dosage: 5 MILLILITER
     Route: 065
  5. DAYBUE [Interacting]
     Active Substance: TROFINETIDE
     Dosage: 10 MILLILITER
     Route: 065
  6. DAYBUE [Interacting]
     Active Substance: TROFINETIDE
     Dosage: 40 MILLILITER, BID
     Route: 048
  7. DAYBUE [Interacting]
     Active Substance: TROFINETIDE
     Dosage: 40 MILLILITER, BID
     Route: 048
  8. DAYBUE [Interacting]
     Active Substance: TROFINETIDE
     Dosage: 7.5 ML
     Route: 048
  9. DAYBUE [Interacting]
     Active Substance: TROFINETIDE
     Dosage: 3.5 ML
     Route: 048
  10. DAYBUE [Interacting]
     Active Substance: TROFINETIDE
     Dosage: 10 ML
     Route: 048
  11. DAYBUE [Interacting]
     Active Substance: TROFINETIDE
     Dosage: 10 MILLILITER
     Route: 065
  12. DAYBUE [Interacting]
     Active Substance: TROFINETIDE
     Dosage: 5 MILLILITER
     Route: 065

REACTIONS (31)
  - Weight decreased [Unknown]
  - Pain [Unknown]
  - Crying [Unknown]
  - Weight decreased [Unknown]
  - Drug interaction [Unknown]
  - Asthenia [Unknown]
  - Drug interaction [Unknown]
  - Weight decreased [Unknown]
  - Abdominal pain upper [Unknown]
  - Diarrhoea [Unknown]
  - Vomiting [Unknown]
  - Diarrhoea [Unknown]
  - Vomiting [Unknown]
  - Vomiting [Unknown]
  - Diarrhoea [Unknown]
  - Hypophagia [Not Recovered/Not Resolved]
  - Asthenia [Unknown]
  - Illness [Unknown]
  - Product formulation issue [Unknown]
  - Gastrointestinal sounds abnormal [Unknown]
  - Weight decreased [Unknown]
  - Constipation [Not Recovered/Not Resolved]
  - Underdose [Not Recovered/Not Resolved]
  - Asthenia [Unknown]
  - Pain [Unknown]
  - Ill-defined disorder [Unknown]
  - Constipation [Unknown]
  - Vomiting [Unknown]
  - Diarrhoea [Recovering/Resolving]
  - Vomiting [Unknown]
  - Diarrhoea [Unknown]

NARRATIVE: CASE EVENT DATE: 20230524
